FAERS Safety Report 6148929-0 (Version None)
Quarter: 2009Q2

REPORT INFORMATION
  Report Type: 
  Country: None (occurrence: None)
  Receive Date: 20090406
  Receipt Date: 20090323
  Transmission Date: 20091009
  Serious: Yes (Other)
  Sender: FDA-Public Use
  Company Number: GXKR2009CA03765

PATIENT
  Age: 50 Year
  Sex: Female

DRUGS (6)
  1. MYCOPHENOLATE MOFETIL [Suspect]
     Indication: SYSTEMIC SCLEROSIS
     Dates: end: 20070201
  2. PREDNISONE [Suspect]
     Indication: SYSTEMIC SCLEROSIS
     Dosage: 5 MG, QD; 10 MG, QD; 5 MG, QD
  3. TACROLIMUS [Suspect]
     Indication: SYSTEMIC SCLEROSIS
     Dates: end: 20060201
  4. ACE INHIBITOR NOS (NO INGREDIENTS/ SUBSTANCES) [Concomitant]
  5. SIROLIMUS (SIROLIMUS) [Concomitant]
  6. ENALAPRIL MALEATE [Concomitant]

REACTIONS (10)
  - BLOOD PRESSURE INCREASED [None]
  - CONDITION AGGRAVATED [None]
  - DYSPLASIA [None]
  - MALIGNANT ANORECTAL NEOPLASM [None]
  - MUSCULOSKELETAL STIFFNESS [None]
  - RENAL IMPAIRMENT [None]
  - RENAL TRANSPLANT [None]
  - SKIN TIGHTNESS [None]
  - SQUAMOUS CELL CARCINOMA [None]
  - SYSTEMIC SCLEROSIS [None]
